FAERS Safety Report 4519746-X (Version None)
Quarter: 2004Q4

REPORT INFORMATION
  Report Type: 
  Country: None (occurrence: None)
  Receive Date: 20041203
  Receipt Date: 20041203
  Transmission Date: 20050328
  Serious: Yes (Other)
  Sender: FDA-Public Use
  Company Number: None

PATIENT
  Sex: Male
  Weight: 68.0396 kg

DRUGS (2)
  1. DILAUDID [Suspect]
     Indication: SICKLE CELL ANAEMIA
     Dosage: 2-3 G 2-3 HR # 300
  2. MS CONTIN [Suspect]
     Dosage: Q 8 HRS # 90

REACTIONS (1)
  - DRUG INEFFECTIVE [None]
